FAERS Safety Report 9480856 (Version 2)
Quarter: 2013Q3

REPORT INFORMATION
  Report Type: Spontaneous
  Country: US (occurrence: US)
  Receive Date: 20130828
  Receipt Date: 20130828
  Transmission Date: 20140515
  Serious: Yes (Hospitalization, Other)
  Sender: FDA-Public Use
  Company Number: US-AMGEN-KDL109484

PATIENT
  Age: 59 Year
  Sex: Female

DRUGS (18)
  1. ENBREL [Suspect]
     Indication: RHEUMATOID ARTHRITIS
     Dosage: 25 MG, 2 TIMES/WK
     Route: 065
     Dates: start: 200010, end: 2004
  2. METHOTREXATE [Suspect]
  3. ASPIRIN [Concomitant]
     Dosage: 81 MG, QD
     Dates: start: 2004
  4. CLOPIDOGREL BISULFATE [Concomitant]
     Dosage: 75 MG, QD
     Dates: start: 2004
  5. METOPROLOL TARTRATE [Concomitant]
     Dosage: 50 MG, BID
     Dates: start: 2004
  6. QUINAPRIL HYDROCHLORIDE [Concomitant]
     Dosage: 40 MG, QD
  7. ATORVASTATIN CALCIUM [Concomitant]
     Dosage: 20 MG, QD
  8. GLYCERYL TRINITRATE [Concomitant]
     Dosage: 4 MG, PRN
     Route: 060
  9. AMITRIPTYLINE HYDROCHLORIDE [Concomitant]
     Dosage: 10 MG, QD
  10. GABAPENTIN [Concomitant]
     Dosage: 400 MG, BID
  11. LEVOTHRYROXINE SODIUM [Concomitant]
     Dosage: 200 ?G, QD
  12. CELEXA [Concomitant]
     Dosage: 20 MG, QD
  13. PANTOPRAZOLE SODIUM [Concomitant]
     Dosage: 40 MG, QD
  14. CELECOXIB [Concomitant]
     Dosage: 200 MG, QD
  15. GLIBENCLAMIDE [Concomitant]
     Dosage: 10 MG, BID
  16. GLYBURIDE/METFORMIN [Concomitant]
  17. ISOSORBIDE MONONITRATE [Concomitant]
     Dosage: 30 MG, QD
     Dates: start: 2004
  18. ERGOCALCIFEROL [Concomitant]

REACTIONS (5)
  - Non-Hodgkin^s lymphoma [Unknown]
  - Myocardial infarction [Recovered/Resolved]
  - Blood disorder [Unknown]
  - Anaemia [Not Recovered/Not Resolved]
  - Asthenia [Not Recovered/Not Resolved]
